FAERS Safety Report 5298533-1 (Version None)
Quarter: 2007Q2

REPORT INFORMATION
  Report Type: 
  Country: None (occurrence: None)
  Receive Date: 20070409
  Receipt Date: 20070330
  Transmission Date: 20071010
  Serious: Yes (Other)
  Sender: FDA-Public Use
  Company Number: 231509K07USA

PATIENT
  Age: 50 Year
  Sex: Female
  Weight: 99.7913 kg

DRUGS (8)
  1. REBIF [Suspect]
     Indication: MULTIPLE SCLEROSIS
     Dosage: 44 MCG, 3 IN 1 WEEKS, SUBCUTANEOUS
     Route: 058
     Dates: start: 20060701
  2. PROVIGIL [Suspect]
     Dosage: 100 MG, 1 IN 1 DAYS, ORAL
     Route: 048
     Dates: start: 20070123
  3. LOTREL [Concomitant]
  4. TOPROL-XL [Concomitant]
  5. ASPIRIN [Concomitant]
  6. PLAVIX [Concomitant]
  7. OMEPRAZOLE [Concomitant]
  8. LYRICA [Concomitant]

REACTIONS (6)
  - DEHYDRATION [None]
  - LOSS OF CONSCIOUSNESS [None]
  - MALAISE [None]
  - RESPIRATORY ARREST [None]
  - VISUAL ACUITY REDUCED [None]
  - VISUAL DISTURBANCE [None]
